FAERS Safety Report 6993667-5 (Version None)
Quarter: 2010Q3

REPORT INFORMATION
  Report Type: 
  Country: None (occurrence: None)
  Receive Date: 20100917
  Receipt Date: 20071219
  Transmission Date: 20110219
  Serious: Yes (Other)
  Sender: FDA-Public Use
  Company Number: US-ASTRAZENECA-2007UW12848

PATIENT
  Age: 8058 Day
  Sex: Female
  Weight: 152.4 kg

DRUGS (9)
  1. SEROQUEL [Suspect]
     Indication: SLEEP DISORDER
     Route: 048
     Dates: start: 20050101, end: 20060509
  2. SEROQUEL [Suspect]
     Route: 048
     Dates: start: 20060101, end: 20060508
  3. ZOLOFT [Concomitant]
     Dates: start: 20030101
  4. DILANTIN [Concomitant]
     Dosage: 100 MG CAPSULE TAKE 4 CAPSULE DAILY
     Route: 048
     Dates: start: 20051114
  5. DEMADEX [Concomitant]
     Dates: start: 20060911
  6. TRAZODONE HCL [Concomitant]
     Dosage: 100 MG TABLET TAKE TABLET EVERY 12 HOURS
     Route: 048
     Dates: start: 20060911
  7. METFORMIN HCL [Concomitant]
     Route: 048
     Dates: start: 20060911
  8. AVANDIA [Concomitant]
     Dosage: 2 MG TABLET TAKE 0.5 TABLET EVERY 12 HOURS
     Route: 048
     Dates: start: 20060509
  9. PAXIL CR [Concomitant]
     Dosage: 37.5 MG TABLET TAKE 2 TABLETS EVERY MORNING DAILY
     Route: 048
     Dates: start: 20060911

REACTIONS (4)
  - BLOOD GLUCOSE INCREASED [None]
  - DIABETES MELLITUS [None]
  - DIABETES MELLITUS INADEQUATE CONTROL [None]
  - TYPE 2 DIABETES MELLITUS [None]
